FAERS Safety Report 17536251 (Version 3)
Quarter: 2020Q3

REPORT INFORMATION
  Report Type: Report from Study
  Country: JP (occurrence: JP)
  Receive Date: 20200313
  Receipt Date: 20200721
  Transmission Date: 20201102
  Serious: Yes (Hospitalization)
  Sender: FDA-Public Use
  Company Number: JP-CELLTRION INC.-2018JP018545

PATIENT

DRUGS (51)
  1. RELVAR ELLIPTA [FLUTICASONE FUROATE;VILANTEROL TRIFENATATE] [Suspect]
     Active Substance: FLUTICASONE FUROATE\VILANTEROL TRIFENATATE
     Indication: COUGH
     Dosage: ONE TIME A DAY
     Route: 065
     Dates: start: 20170202
  2. MESALAZINE [Concomitant]
     Active Substance: MESALAMINE
     Indication: CROHN^S DISEASE
     Dosage: 4 G, DAILY
     Dates: start: 20150619
  3. AKINETON [Concomitant]
     Active Substance: BIPERIDEN HYDROCHLORIDE
     Indication: BIPOLAR I DISORDER
     Dosage: 1 MG, DAILY
  4. METHYCOBAL [Concomitant]
     Active Substance: METHYLCOBALAMIN
     Indication: DIABETIC NEUROPATHY
     Dosage: 1500 ?G, DAILY
     Dates: start: 20151221, end: 20160216
  5. LYRICA [Concomitant]
     Active Substance: PREGABALIN
     Indication: DIABETIC NEUROPATHY
     Dosage: 100 MG, DAILY
     Dates: start: 20151130, end: 20160103
  6. INFLIXIMAB BS FOR I.V. INFUSION100 MG [NK] [Suspect]
     Active Substance: INFLIXIMAB
     Dosage: 370 MILLIGRAM
     Route: 041
     Dates: start: 20151016, end: 20151016
  7. LEVOTOMIN                          /00038602/ [Concomitant]
     Active Substance: LEVOMEPROMAZINE
     Indication: BIPOLAR I DISORDER
     Dosage: 5 MG, DAILY
  8. INFLIXIMAB BS FOR I.V. INFUSION100 MG [NK] [Suspect]
     Active Substance: INFLIXIMAB
     Dosage: 390 MILLIGRAM
     Route: 041
     Dates: start: 20151113, end: 20151113
  9. INFLIXIMAB BS FOR I.V. INFUSION100 MG [NK] [Suspect]
     Active Substance: INFLIXIMAB
     Dosage: 420 MILLIGRAM
     Route: 041
     Dates: start: 20170407, end: 20170407
  10. CORTRIL [Concomitant]
     Active Substance: HYDROCORTISONE
     Indication: ADRENAL GLAND CANCER
     Dosage: 5?60 MG/DAY
     Dates: start: 20160326, end: 20160920
  11. HYDROCORTONE                       /00028601/ [Concomitant]
     Active Substance: HYDROCORTISONE
     Indication: ADRENAL GLAND CANCER
     Dosage: 300 MG, DAILY
     Dates: start: 20160323, end: 20160325
  12. SULBACILLIN [Concomitant]
     Active Substance: AMPICILLIN SODIUM\SULBACTAM SODIUM
     Indication: INFECTION PROPHYLAXIS
     Dosage: 3 G, DAILY
     Dates: start: 20160323, end: 20160325
  13. SHOSEIRYUTO [ASARUM SPP. ROOT;CINNAMOMUM CASSIA BARK;EPHEDRA SPP. HERB [Concomitant]
     Active Substance: EPHEDRA SINICA STEM\HERBALS
     Indication: NASOPHARYNGITIS
     Dosage: UNK
     Dates: start: 20161015
  14. INFLIXIMAB BS FOR I.V. INFUSION100 MG [NK] [Suspect]
     Active Substance: INFLIXIMAB
     Dosage: 410 MILLIGRAM
     Route: 041
     Dates: start: 20160304, end: 20160304
  15. INFLIXIMAB BS FOR I.V. INFUSION100 MG [NK] [Suspect]
     Active Substance: INFLIXIMAB
     Dosage: 420 MILLIGRAM
     Route: 041
     Dates: start: 20160701, end: 20160701
  16. INFLIXIMAB BS FOR I.V. INFUSION100 MG [NK] [Suspect]
     Active Substance: INFLIXIMAB
     Dosage: 410 MILLIGRAM
     Route: 041
     Dates: start: 20161026, end: 20161026
  17. INFLIXIMAB BS FOR I.V. INFUSION100 MG [NK] [Suspect]
     Active Substance: INFLIXIMAB
     Dosage: 410 MILLIGRAM
     Route: 041
     Dates: start: 20170210, end: 20170210
  18. DEPAKENE [Concomitant]
     Active Substance: VALPROIC ACID
     Indication: BIPOLAR I DISORDER
     Dosage: 300 MG, DAILY
  19. RISPERDAL [Concomitant]
     Active Substance: RISPERIDONE
     Indication: BIPOLAR I DISORDER
     Dosage: 0.5 MG, DAILY
  20. SOSEGON                            /00052101/ [Concomitant]
     Active Substance: PENTAZOCINE
     Indication: PAIN MANAGEMENT
     Dosage: 15 MG, DAILY
     Dates: start: 20160323, end: 20160326
  21. INFLIXIMAB BS FOR I.V. INFUSION100 MG [NK] [Suspect]
     Active Substance: INFLIXIMAB
     Dosage: 430 MILLIGRAM
     Route: 041
     Dates: start: 20170728, end: 20170728
  22. BIO?THREE [Concomitant]
     Active Substance: HERBALS
     Indication: CROHN^S DISEASE
     Dosage: 6 DF, DAILY
     Dates: start: 20150619
  23. ABILIFY [Concomitant]
     Active Substance: ARIPIPRAZOLE
     Indication: BIPOLAR I DISORDER
     Dosage: 12 MG, DAILY
  24. LYRICA [Concomitant]
     Active Substance: PREGABALIN
     Dosage: 150 MG DAILY
     Dates: start: 20160104, end: 20160328
  25. LORAZEPAM. [Concomitant]
     Active Substance: LORAZEPAM
     Indication: BIPOLAR I DISORDER
     Dosage: 0.5 MG, DAILY
  26. SOLYUGEN G [Concomitant]
     Indication: ADRENAL GLAND CANCER
     Dosage: 500?1500 ML/DAY
     Dates: start: 20160322, end: 20160325
  27. VEEN 3G [Concomitant]
     Indication: ADRENAL GLAND CANCER
     Dosage: 500?1000 ML/DAY
     Dates: start: 20160322, end: 20160326
  28. SOLYUGEN F [Concomitant]
     Active Substance: CALCIUM CHLORIDE\POTASSIUM CHLORIDE\SODIUM ACETATE\SODIUM CHLORIDE
     Indication: ADRENAL GLAND CANCER
     Dosage: 1000 ML, DAILY
     Dates: start: 20160323, end: 20160323
  29. TRAZODONE HYDROCHLORIDE. [Concomitant]
     Active Substance: TRAZODONE HYDROCHLORIDE
     Indication: BIPOLAR I DISORDER
     Dosage: UNK
     Dates: start: 201609
  30. ANAFRANIL [Concomitant]
     Active Substance: CLOMIPRAMINE HYDROCHLORIDE
     Indication: BIPOLAR I DISORDER
     Dosage: UNK
     Dates: start: 201609
  31. COCARL [Concomitant]
     Active Substance: ACETAMINOPHEN
     Indication: ARTHRALGIA
     Dosage: UNK
     Dates: start: 20170308
  32. INFLIXIMAB BS FOR I.V. INFUSION100 MG [NK] [Suspect]
     Active Substance: INFLIXIMAB
     Dosage: 420 MILLIGRAM
     Route: 041
     Dates: start: 20170922, end: 20170922
  33. LUNESTA [Concomitant]
     Active Substance: ESZOPICLONE
     Indication: BIPOLAR I DISORDER
     Dosage: 2 MG, DAILY
  34. ROPION [Concomitant]
     Active Substance: FLURBIPROFEN AXETIL
     Indication: PAIN MANAGEMENT
     Dosage: 50 MG, DAILY
     Dates: start: 20160323, end: 20160326
  35. CELECOX [Concomitant]
     Active Substance: CELECOXIB
     Indication: CROHN^S DISEASE
     Dosage: UNK
     Dates: start: 20170210, end: 20170308
  36. CANAGLU [Concomitant]
     Active Substance: CANAGLIFLOZIN
     Indication: DIABETES MELLITUS
     Dosage: UNK
     Dates: start: 20170816
  37. INFLIXIMAB BS FOR I.V. INFUSION100 MG [NK] [Suspect]
     Active Substance: INFLIXIMAB
     Indication: CROHN^S DISEASE
     Dosage: 360 MILLIGRAM
     Route: 041
     Dates: start: 20151002, end: 20151002
  38. INFLIXIMAB BS FOR I.V. INFUSION100 MG [NK] [Suspect]
     Active Substance: INFLIXIMAB
     Dosage: 430 MILLIGRAM
     Route: 041
     Dates: start: 20160506, end: 20160506
  39. NEXIUM [Concomitant]
     Active Substance: ESOMEPRAZOLE MAGNESIUM
     Indication: CHRONIC GASTRITIS
     Dosage: 20 MG, DAILY
     Dates: start: 20150619, end: 20160322
  40. FAMOTIDINE OD [Concomitant]
     Active Substance: FAMOTIDINE
     Indication: PROPHYLAXIS AGAINST GASTROINTESTINAL ULCER
     Dosage: 40 MG, DAILY
     Dates: start: 20160323, end: 20160420
  41. LOXONIN [Concomitant]
     Active Substance: LOXOPROFEN SODIUM
     Indication: PAIN MANAGEMENT
     Dosage: 60 MG, DAILY
     Dates: start: 20160327, end: 20160327
  42. ASVERIN [RIBAVIRIN] [Concomitant]
     Indication: NASOPHARYNGITIS
     Dosage: UNK
     Dates: start: 20161015
  43. MOSAPRIDE CITRATE HYDRATE [Concomitant]
     Active Substance: MOSAPRIDE CITRATE DIHYDRATE
     Indication: ABDOMINAL DISTENSION
     Dosage: UNK
     Dates: start: 20161216
  44. INFLIXIMAB BS FOR I.V. INFUSION100 MG [NK] [Suspect]
     Active Substance: INFLIXIMAB
     Dosage: 420 MILLIGRAM
     Route: 041
     Dates: start: 20160108, end: 20160108
  45. INFLIXIMAB BS FOR I.V. INFUSION100 MG [NK] [Suspect]
     Active Substance: INFLIXIMAB
     Dosage: 420 MILLIGRAM
     Route: 041
     Dates: start: 20160826, end: 20160826
  46. INFLIXIMAB BS FOR I.V. INFUSION100 MG [NK] [Suspect]
     Active Substance: INFLIXIMAB
     Dosage: 410 MILLIGRAM
     Route: 041
     Dates: start: 20161216, end: 20161216
  47. INFLIXIMAB BS FOR I.V. INFUSION100 MG [NK] [Suspect]
     Active Substance: INFLIXIMAB
     Dosage: 410 MILLIGRAM
     Route: 041
     Dates: start: 20171117, end: 20171117
  48. CLARITHROMYCIN. [Suspect]
     Active Substance: CLARITHROMYCIN
     Indication: COUGH
     Dosage: 800 MILLIGRAM, QD
     Route: 065
     Dates: start: 20170223
  49. MIYA?BM [Concomitant]
     Active Substance: CLOSTRIDIUM BUTYRICUM SPORES STRAIN M-55
     Indication: CROHN^S DISEASE
     Dosage: 60 MG, DAILY
     Dates: start: 20150619
  50. ELENTAL [Concomitant]
     Active Substance: AMINO ACIDS\CARBOHYDRATES\MINERALS\SOYBEAN OIL\VITAMINS
     Indication: CROHN^S DISEASE
     Dosage: 0?240 G/DAY
     Dates: start: 20150619
  51. ATARAX?P                           /00058402/ [Concomitant]
     Active Substance: HYDROXYZINE HYDROCHLORIDE
     Indication: PAIN MANAGEMENT
     Dosage: 25 MG, DAILY
     Dates: start: 20160323, end: 20160326

REACTIONS (10)
  - Adrenal gland cancer [Recovered/Resolved]
  - Eczema [Recovering/Resolving]
  - Alanine aminotransferase increased [Not Recovered/Not Resolved]
  - Urticaria [Recovered/Resolved]
  - Cough [Recovered/Resolved]
  - Nasopharyngitis [Recovered/Resolved]
  - Overdose [Unknown]
  - Aspartate aminotransferase increased [Not Recovered/Not Resolved]
  - Nausea [Recovering/Resolving]
  - Arthralgia [Not Recovered/Not Resolved]

NARRATIVE: CASE EVENT DATE: 20160601
